FAERS Safety Report 15885406 (Version 1)
Quarter: 2019Q1

REPORT INFORMATION
  Report Type: Spontaneous
  Country: FR (occurrence: FR)
  Receive Date: 20190129
  Receipt Date: 20190129
  Transmission Date: 20190417
  Serious: Yes (Hospitalization)
  Sender: FDA-Public Use
  Company Number: FR-TEVA-2019-FR-1003352

PATIENT
  Age: 90 Year
  Sex: Female
  Weight: 49 kg

DRUGS (11)
  1. PANTOPRAZOLE [Suspect]
     Active Substance: PANTOPRAZOLE
     Indication: GASTROOESOPHAGEAL REFLUX DISEASE
     Dosage: 20 MILLIGRAM DAILY;
     Route: 048
     Dates: start: 20180706
  2. BISOPROLOL (FUMARATE DE) [Concomitant]
     Active Substance: BISOPROLOL FUMARATE
     Indication: MYOCARDIAL ISCHAEMIA
     Dosage: 1.25 MILLIGRAM DAILY;
     Route: 048
     Dates: start: 20180721
  3. DIFFU K, GELULE [Concomitant]
     Active Substance: POTASSIUM CHLORIDE
     Indication: HYPOKALAEMIA
     Dosage: 1800 MILLIGRAM DAILY;
     Route: 048
  4. TRINIPATCH 5 MG/24 HEURES, DISPOSITIF TRANSDERMIQUE (22,4 MG / 7 CM?) [Concomitant]
     Indication: MYOCARDIAL ISCHAEMIA
     Dosage: 5 MILLIGRAM DAILY; 5 MG/24 HOURS, TRANSDERMAL DEVICE (22.4 MG/7 CM ?)
     Route: 062
     Dates: start: 20180825
  5. SERTRALINE MYLAN 25 MG, GELULE [Suspect]
     Active Substance: SERTRALINE HYDROCHLORIDE
     Indication: ADULT FAILURE TO THRIVE
     Dosage: 25 MILLIGRAM DAILY;
     Route: 048
     Dates: start: 20180920, end: 20181221
  6. BRILIQUE 90 MG, COMPRIME PELLICULE [Concomitant]
     Active Substance: TICAGRELOR
     Indication: MYOCARDIAL ISCHAEMIA
     Dosage: 180 MILLIGRAM DAILY;
     Route: 048
     Dates: start: 20180721
  7. ATORVASTATINE [Suspect]
     Active Substance: ATORVASTATIN
     Dosage: 20 MILLIGRAM DAILY;
     Route: 048
     Dates: start: 20180721, end: 20181207
  8. RAMIPRIL. [Suspect]
     Active Substance: RAMIPRIL
     Indication: HYPERTENSION
     Dosage: 5 MILLIGRAM DAILY;
     Route: 048
     Dates: start: 20180721, end: 20180721
  9. KARDEGIC [Concomitant]
     Active Substance: ASPIRIN DL-LYSINE
     Indication: MYOCARDIAL ISCHAEMIA
     Dosage: 75 MILLIGRAM DAILY; IN SACHET-DOSE
     Route: 048
     Dates: start: 20180721
  10. ALPRAZOLAM. [Concomitant]
     Active Substance: ALPRAZOLAM
     Indication: ANXIETY
     Dosage: .5 MILLIGRAM DAILY;
     Route: 048
     Dates: start: 20180705
  11. PARACETAMOL [Concomitant]
     Active Substance: ACETAMINOPHEN
     Indication: PAIN
     Route: 048
     Dates: start: 20180706

REACTIONS (2)
  - Jaundice cholestatic [Not Recovered/Not Resolved]
  - Adult failure to thrive [None]

NARRATIVE: CASE EVENT DATE: 20181206
